FAERS Safety Report 9411480 (Version 1)
Quarter: 2013Q3

REPORT INFORMATION
  Report Type: Spontaneous
  Country: DE (occurrence: DE)
  Receive Date: 20130722
  Receipt Date: 20130722
  Transmission Date: 20140515
  Serious: Yes (Hospitalization)
  Sender: FDA-Public Use
  Company Number: DE-BRISTOL-MYERS SQUIBB COMPANY-19114560

PATIENT
  Age: 70 Year
  Sex: Female

DRUGS (2)
  1. KARVEA [Suspect]
     Indication: HYPERTENSION
  2. EFEROX [Concomitant]
     Dosage: EFEROX 50 (L-THYROXINE).

REACTIONS (2)
  - Blood sodium decreased [Unknown]
  - Syncope [Unknown]
